FAERS Safety Report 19241131 (Version 1)
Quarter: 2021Q2

REPORT INFORMATION
  Report Type: Spontaneous
  Country: US (occurrence: US)
  Receive Date: 20210510
  Receipt Date: 20210510
  Transmission Date: 20210717
  Serious: Yes (Hospitalization)
  Sender: FDA-Public Use
  Company Number: None

PATIENT
  Age: 77 Year
  Sex: Female

DRUGS (26)
  1. ELIQUIS [Concomitant]
     Active Substance: APIXABAN
  2. LUMIGAN [Concomitant]
     Active Substance: BIMATOPROST
  3. PANTOPRAZOLE [Concomitant]
     Active Substance: PANTOPRAZOLE
  4. POT CHLORIDE [Concomitant]
     Active Substance: POTASSIUM CHLORIDE
  5. VITAMIN C [Concomitant]
     Active Substance: ASCORBIC ACID
  6. CYCLOBENZAPINE [Concomitant]
  7. ASPIRIN. [Concomitant]
     Active Substance: ASPIRIN
  8. FERROUS [Concomitant]
     Active Substance: IRON
  9. OYSTER SHELL [Concomitant]
     Active Substance: OSTREA EDULIS SHELL
  10. ESBRIET [Suspect]
     Active Substance: PIRFENIDONE
     Indication: IDIOPATHIC PULMONARY FIBROSIS
     Route: 048
     Dates: start: 20160927
  11. AMLODIPINE [Concomitant]
     Active Substance: AMLODIPINE BESYLATE
  12. CALCIUM [Concomitant]
     Active Substance: CALCIUM
  13. FUROSEMIDE. [Concomitant]
     Active Substance: FUROSEMIDE
  14. OMEGA 3 [Concomitant]
     Active Substance: OMEGA-3 FATTY ACIDS
  15. CAVEDILOL [Concomitant]
     Active Substance: CARVEDILOL
  16. LASIX [Concomitant]
     Active Substance: FUROSEMIDE
  17. NOVOLOG [Concomitant]
     Active Substance: INSULIN ASPART
  18. ALLOPURINOL. [Concomitant]
     Active Substance: ALLOPURINOL
  19. METOPROLOL. [Concomitant]
     Active Substance: METOPROLOL
  20. REFRESH [Concomitant]
     Active Substance: UNSPECIFIED INGREDIENT
  21. SIMBRINZA [Concomitant]
     Active Substance: BRIMONIDINE TARTRATE\BRINZOLAMIDE
  22. VITAMIN D3 [Concomitant]
     Active Substance: CHOLECALCIFEROL
  23. ATORVASTATIN [Concomitant]
     Active Substance: ATORVASTATIN
  24. HYDRALAZINE [Concomitant]
     Active Substance: HYDRALAZINE HYDROCHLORIDE
  25. METFORMIN [Concomitant]
     Active Substance: METFORMIN HYDROCHLORIDE
  26. OMEPRAZOLE. [Concomitant]
     Active Substance: OMEPRAZOLE

REACTIONS (2)
  - Ankle fracture [None]
  - Road traffic accident [None]
